FAERS Safety Report 6758345-6 (Version None)
Quarter: 2010Q2

REPORT INFORMATION
  Report Type: 
  Country: None (occurrence: None)
  Receive Date: 20100607
  Receipt Date: 20100527
  Transmission Date: 20101027
  Serious: Yes (Hospitalization)
  Sender: FDA-Public Use
  Company Number: GB-JNJFOC-20100600264

PATIENT
  Age: 60 Year
  Sex: Female

DRUGS (2)
  1. INFLIXIMAB [Suspect]
     Indication: PSORIASIS
     Route: 042
  2. ACITRETIN [Concomitant]
     Indication: PSORIASIS

REACTIONS (4)
  - ANAPHYLACTOID REACTION [None]
  - ASTHMA [None]
  - PSORIASIS [None]
  - RESPIRATORY DISORDER [None]
